FAERS Safety Report 6585216-0 (Version None)
Quarter: 2010Q1

REPORT INFORMATION
  Report Type: 
  Country: None (occurrence: None)
  Receive Date: 20100217
  Receipt Date: 20100208
  Transmission Date: 20100710
  Serious: Yes (Other)
  Sender: FDA-Public Use
  Company Number: NL-PFIZER INC-2010016148

PATIENT
  Age: 68 Year
  Sex: Male
  Weight: 89.796 kg

DRUGS (2)
  1. LIPITOR [Suspect]
     Indication: HYPERCHOLESTEROLAEMIA
     Dosage: 1 DAILY
     Dates: start: 20050128
  2. ENALAPRIL MALEATE [Concomitant]
     Dosage: 20 MG, 1X/DAY
     Dates: start: 20050101

REACTIONS (1)
  - ASTHENIA [None]
